FAERS Safety Report 10395449 (Version 4)
Quarter: 2014Q4

REPORT INFORMATION
  Report Type: Report from Study
  Country: JP (occurrence: JP)
  Receive Date: 20140820
  Receipt Date: 20141009
  Transmission Date: 20150528
  Serious: Yes (Other)
  Sender: FDA-Public Use
  Company Number: JP-PFIZER INC-2014228317

PATIENT
  Age: 74 Year
  Sex: Female
  Weight: 52 kg

DRUGS (11)
  1. FOSPHENYTOIN SODIUM. [Suspect]
     Active Substance: FOSPHENYTOIN SODIUM
     Indication: CONVULSION PROPHYLAXIS
     Dosage: 14.4 MG/KG, 25MG/MIN, 0.9% PHYSIOLOGICAL SALINE, DILUTION RATIO 1:10
     Dates: start: 20130329
  2. TRANSAMIN [Concomitant]
     Active Substance: TRANEXAMIC ACID
     Indication: PROPHYLAXIS
     Dosage: 1 G
     Dates: start: 20130330
  3. GASTER [Concomitant]
     Active Substance: FAMOTIDINE
     Indication: PROPHYLAXIS AGAINST GASTROINTESTINAL ULCER
     Dosage: 20 MG
     Dates: start: 20130329, end: 20130331
  4. TAKEPRON [Concomitant]
     Active Substance: LANSOPRAZOLE
     Indication: GASTRIC ULCER
     Dosage: 15 MG (AFTER ADMINISTRATION OF FOSPHENYTOIN)
     Route: 048
     Dates: start: 20130401
  5. FOSPHENYTOIN SODIUM. [Suspect]
     Active Substance: FOSPHENYTOIN SODIUM
     Dosage: 7.2 MG/KG, 12.5MG/MIN, 0.9% PHYSIOLOGICAL SALINE, DILUTION RATIO 1:10
     Dates: start: 20130330
  6. FOSPHENYTOIN SODIUM. [Suspect]
     Active Substance: FOSPHENYTOIN SODIUM
     Dosage: 7.2 MG/KG, 12.5MG/MIN, 0.9% PHYSIOLOGICAL SALINE, DILUTION RATIO 1:10
     Dates: start: 20130331
  7. FOSPHENYTOIN SODIUM. [Suspect]
     Active Substance: FOSPHENYTOIN SODIUM
     Dosage: 7.2 MG/KG, 12.5MG/MIN, 0.9% PHYSIOLOGICAL SALINE, DILUTION RATIO 1:10
     Dates: start: 20130401
  8. KEPPRA [Concomitant]
     Active Substance: LEVETIRACETAM
     Indication: SEIZURE
     Dosage: 1000 MG (5DAYS AFTER ADMINISTRATION OF FOSPHENYTOIN)
     Route: 048
     Dates: start: 20130401
  9. RASENAZOLIN [Concomitant]
     Active Substance: CEFAZOLIN SODIUM
     Indication: PROPHYLAXIS
     Dosage: 2 G
     Dates: start: 20130329, end: 20130401
  10. ADONA [Concomitant]
     Active Substance: CARBAZOCHROME SODIUM SULFONATE
     Indication: PROPHYLAXIS
     Dosage: 100 MG
     Dates: start: 20130330
  11. TEGRETOL [Concomitant]
     Active Substance: CARBAMAZEPINE
     Indication: SEIZURE
     Dosage: 200 MG (5 DAYS AFTER ADMINISTRATION OF FOSPHENYTOIN)
     Route: 048
     Dates: start: 20130330

REACTIONS (3)
  - Seizure [Recovered/Resolved]
  - Quadriparesis [Recovering/Resolving]
  - Post procedural haemorrhage [Recovered/Resolved]

NARRATIVE: CASE EVENT DATE: 20130329
